FAERS Safety Report 15751552 (Version 1)
Quarter: 2018Q4

REPORT INFORMATION
  Report Type: Spontaneous
  Country: AU (occurrence: AU)
  Receive Date: 20181221
  Receipt Date: 20181221
  Transmission Date: 20190205
  Serious: Yes (Disabling)
  Sender: FDA-Public Use
  Company Number: AU-VIFOR (INTERNATIONAL) INC.-VIT-2018-10433

PATIENT
  Sex: Female
  Weight: 70 kg

DRUGS (7)
  1. COENZYME Q10 [Concomitant]
     Active Substance: UBIDECARENONE
     Route: 048
  2. MIRCERA [Suspect]
     Active Substance: METHOXY POLYETHYLENE GLYCOL-EPOETIN BETA
     Indication: RENAL IMPAIRMENT
     Route: 058
     Dates: start: 201705
  3. GLUCOSAMINE [Concomitant]
     Active Substance: GLUCOSAMINE
     Route: 048
  4. CRESTOR [Concomitant]
     Active Substance: ROSUVASTATIN CALCIUM
     Indication: HYPERCHOLESTEROLAEMIA
     Route: 048
  5. MAG-SAP [Concomitant]
     Indication: RENAL IMPAIRMENT
     Route: 048
  6. MALTOFER [Concomitant]
     Indication: IRON DEFICIENCY
     Route: 048
  7. FERINJECT [Suspect]
     Active Substance: FERRIC CARBOXYMALTOSE
     Indication: IRON DEFICIENCY

REACTIONS (3)
  - Hypersomnia [Recovered/Resolved]
  - Fatigue [Recovered/Resolved]
  - Physical disability [Recovered/Resolved]
